FAERS Safety Report 14017073 (Version 4)
Quarter: 2017Q4

REPORT INFORMATION
  Report Type: Spontaneous
  Country: GB (occurrence: GB)
  Receive Date: 20170927
  Receipt Date: 20171212
  Transmission Date: 20180321
  Serious: Yes (Hospitalization, Other)
  Sender: FDA-Public Use
  Company Number: GB-JNJFOC-20170925488

PATIENT
  Age: 54 Year
  Sex: Female

DRUGS (12)
  1. RITUXIMAB. [Suspect]
     Active Substance: RITUXIMAB
     Indication: GLOMERULONEPHRITIS
     Route: 065
     Dates: start: 201704
  2. HALOPERIDOL. [Suspect]
     Active Substance: HALOPERIDOL
     Indication: PSYCHOTIC DISORDER
     Route: 065
     Dates: start: 2017
  3. FERROUS FUMARATE [Concomitant]
     Active Substance: FERROUS FUMARATE
     Route: 065
  4. FRUSEMIDE [Concomitant]
     Active Substance: FUROSEMIDE
     Route: 065
  5. RANITIDINE. [Concomitant]
     Active Substance: RANITIDINE
     Route: 065
  6. CLOZARIL [Suspect]
     Active Substance: CLOZAPINE
     Indication: SCHIZOPHRENIA
     Route: 048
     Dates: start: 20170920, end: 201709
  7. PREDNISOLONE. [Concomitant]
     Active Substance: PREDNISOLONE
     Route: 065
  8. LEVOTHYROXINE. [Concomitant]
     Active Substance: LEVOTHYROXINE
     Route: 065
  9. LORAZEPAM. [Concomitant]
     Active Substance: LORAZEPAM
     Route: 065
  10. ADCAL [Concomitant]
     Active Substance: CALCIUM CARBONATE
     Route: 065
  11. PENTAMIDINE [Concomitant]
     Active Substance: PENTAMIDINE
     Route: 065
  12. CLOZARIL [Suspect]
     Active Substance: CLOZAPINE
     Indication: SCHIZOPHRENIA
     Route: 048
     Dates: start: 20030425, end: 2017

REACTIONS (13)
  - Haemoglobin decreased [Recovered/Resolved]
  - Neutrophil count increased [Not Recovered/Not Resolved]
  - Platelet count increased [Recovered/Resolved]
  - Neutropenia [Recovered/Resolved]
  - Renal disorder [Recovering/Resolving]
  - White blood cell count increased [Recovered/Resolved]
  - Mental impairment [Not Recovered/Not Resolved]
  - White blood cell count decreased [Recovered/Resolved]
  - Blood creatinine increased [Unknown]
  - Lymphocyte count decreased [Unknown]
  - Renal vasculitis [Recovering/Resolving]
  - General physical condition abnormal [Unknown]
  - Glomerular filtration rate decreased [Unknown]

NARRATIVE: CASE EVENT DATE: 2017
